FAERS Safety Report 5039750-5 (Version None)
Quarter: 2006Q2

REPORT INFORMATION
  Report Type: 
  Country: None (occurrence: None)
  Receive Date: 20060601
  Receipt Date: 20060117
  Transmission Date: 20061013
  Serious: No
  Sender: FDA-Public Use
  Company Number: 2006PV007270

PATIENT
  Age: 46 Year
  Sex: Female
  Weight: 83.9154 kg

DRUGS (5)
  1. BYETTA [Suspect]
     Indication: DIABETES MELLITUS NON-INSULIN-DEPENDENT
     Dosage: SEE IMAGE
     Route: 058
     Dates: start: 20051202, end: 20060102
  2. BYETTA [Suspect]
     Indication: DIABETES MELLITUS NON-INSULIN-DEPENDENT
     Dosage: SEE IMAGE
     Route: 058
     Dates: start: 20060103
  3. METFORMIN XL [Concomitant]
  4. AMARYL [Concomitant]
  5. LIPITOR [Concomitant]

REACTIONS (6)
  - ANOREXIA [None]
  - BLOOD GLUCOSE DECREASED [None]
  - LIVER FUNCTION TEST ABNORMAL [None]
  - NAUSEA [None]
  - VOMITING [None]
  - WEIGHT DECREASED [None]
